FAERS Safety Report 11512503 (Version 1)
Quarter: 2015Q3

REPORT INFORMATION
  Report Type: Spontaneous
  Country: US (occurrence: None)
  Receive Date: 20150915
  Receipt Date: 20150915
  Transmission Date: 20151125
  Serious: Yes (Other)
  Sender: FDA-Public Use
  Company Number: None

PATIENT
  Age: 47 Year
  Sex: Female
  Weight: 73.6 kg

DRUGS (1)
  1. REMICADE [Suspect]
     Active Substance: INFLIXIMAB
     Indication: RHEUMATOID ARTHRITIS
     Dosage: 5MG/KG Q 8 WKS
     Route: 042
     Dates: start: 20150805

REACTIONS (3)
  - Rash erythematous [None]
  - Infusion related reaction [None]
  - Pruritus generalised [None]

NARRATIVE: CASE EVENT DATE: 20150805
